FAERS Safety Report 4720538-7 (Version None)
Quarter: 2005Q3

REPORT INFORMATION
  Report Type: 
  Country: None (occurrence: None)
  Receive Date: 20050719
  Receipt Date: 20050707
  Transmission Date: 20060218
  Serious: Yes (Other)
  Sender: FDA-Public Use
  Company Number: 2005098621

PATIENT
  Age: 29 Year
  Sex: Female
  Weight: 97.5234 kg

DRUGS (3)
  1. ZOLOFT [Suspect]
     Indication: PANIC ATTACK
     Dosage: 50 MG (50 MG, 1 IN 1 D), ORAL
     Route: 048
     Dates: start: 20010101
  2. ZOLOFT [Suspect]
     Indication: SOCIAL PHOBIA
     Dosage: 50 MG (50 MG, 1 IN 1 D), ORAL
     Route: 048
     Dates: start: 20010101
  3. PRENATAL VITAMINS (ASCORBIC ACID, BIOTIN, MINERALS NOS, NICOTINIC ACID [Concomitant]

REACTIONS (5)
  - BREECH PRESENTATION [None]
  - CAESAREAN SECTION [None]
  - DRUG EXPOSURE DURING PREGNANCY [None]
  - GESTATIONAL DIABETES [None]
  - PREGNANCY [None]
